FAERS Safety Report 6849483-8 (Version None)
Quarter: 2010Q3

REPORT INFORMATION
  Report Type: 
  Country: None (occurrence: None)
  Receive Date: 20100716
  Receipt Date: 20100628
  Transmission Date: 20110219
  Serious: Yes (Death, Hospitalization)
  Sender: FDA-Public Use
  Company Number: PHHY2009JP38526

PATIENT
  Sex: Male
  Weight: 69 kg

DRUGS (11)
  1. ICL670A ICL+DISTAB [Suspect]
     Indication: MYELODYSPLASTIC SYNDROME
     Dosage: 1000 MG DAILY
     Route: 048
     Dates: start: 20090217, end: 20100127
  2. ICL670A ICL+DISTAB [Suspect]
     Indication: IRON OVERLOAD
  3. NEORAL [Suspect]
     Indication: MYELODYSPLASTIC SYNDROME
     Dosage: UNK
     Route: 048
     Dates: start: 20090507, end: 20090630
  4. SUNRABIN [Suspect]
     Indication: MYELODYSPLASTIC SYNDROME
     Dosage: 250 MG DAILY
     Route: 042
     Dates: start: 20090803, end: 20090809
  5. DAUNOMYCIN [Suspect]
     Indication: MYELODYSPLASTIC SYNDROME
     Dosage: 40 MG DAILY
     Route: 042
     Dates: start: 20090803, end: 20090805
  6. GRAN [Suspect]
     Indication: MYELODYSPLASTIC SYNDROME
     Dosage: 150 UG, UNK
     Route: 042
     Dates: start: 20090112, end: 20090503
  7. PRIMOBOLAN [Concomitant]
     Indication: MYELODYSPLASTIC SYNDROME
     Dosage: 30 MG, UNK
     Route: 048
     Dates: start: 20080729, end: 20090503
  8. CYLOCIDE [Concomitant]
     Indication: MYELODYSPLASTIC SYNDROME
     Dosage: 30 MG, UNK
     Route: 042
     Dates: start: 20090703, end: 20090717
  9. MAXIPIME [Concomitant]
     Dosage: 2 G, UNK
     Route: 042
     Dates: start: 20090805, end: 20090819
  10. RED BLOOD CELLS [Concomitant]
     Dosage: 2 UNITS EVERY WEEK
     Dates: start: 20090729, end: 20090810
  11. PLATELETS [Concomitant]
     Dosage: 15 UNITS EVERY FOUR DAYS
     Dates: start: 20090624, end: 20090816

REACTIONS (11)
  - ANAEMIA [None]
  - BLOOD LACTATE DEHYDROGENASE INCREASED [None]
  - BRONCHOPULMONARY ASPERGILLOSIS [None]
  - LYMPHOCYTE COUNT DECREASED [None]
  - NEUTROPHIL PERCENTAGE DECREASED [None]
  - PLATELET COUNT DECREASED [None]
  - PNEUMONIA [None]
  - RENAL IMPAIRMENT [None]
  - SEPSIS [None]
  - SERUM FERRITIN INCREASED [None]
  - WHITE BLOOD CELL COUNT DECREASED [None]
